FAERS Safety Report 5715835-2 (Version None)
Quarter: 2008Q2

REPORT INFORMATION
  Report Type: 
  Country: None (occurrence: None)
  Receive Date: 20080422
  Receipt Date: 20080407
  Transmission Date: 20081010
  Serious: Yes (Hospitalization)
  Sender: FDA-Public Use
  Company Number: IDA-00038

PATIENT
  Sex: Male

DRUGS (1)
  1. PROPRANOLOL [Suspect]
     Dosage: 800 MG ONCE
     Route: 048
     Dates: start: 20080407, end: 20080407

REACTIONS (1)
  - INTENTIONAL OVERDOSE [None]
